FAERS Safety Report 4653812-3 (Version None)
Quarter: 2005Q2

REPORT INFORMATION
  Report Type: 
  Country: None (occurrence: None)
  Receive Date: 20050504
  Receipt Date: 20050421
  Transmission Date: 20051028
  Serious: Yes (Hospitalization, Other)
  Sender: FDA-Public Use
  Company Number: KII-2005-0016245

PATIENT
  Age: 31 Year
  Sex: Female

DRUGS (2)
  1. OXYCONTIN [Suspect]
     Indication: DRUG USE FOR UNKNOWN INDICATION
     Dosage: ORAL
     Route: 048
  2. AMITRIPTYLINE HCL [Suspect]
     Indication: DRUG USE FOR UNKNOWN INDICATION
     Dosage: ORAL
     Route: 048

REACTIONS (6)
  - AGITATION [None]
  - COMA [None]
  - CONVULSION [None]
  - LETHARGY [None]
  - METABOLIC ACIDOSIS [None]
  - RESPIRATORY RATE DECREASED [None]
